FAERS Safety Report 13662109 (Version 3)
Quarter: 2017Q3

REPORT INFORMATION
  Report Type: Spontaneous
  Country: US (occurrence: US)
  Receive Date: 20170616
  Receipt Date: 20170825
  Transmission Date: 20171127
  Serious: No
  Sender: FDA-Public Use
  Company Number: US-ACTELION-A-US2017-154706

PATIENT
  Age: 57 Year
  Sex: Female
  Weight: 96.15 kg

DRUGS (2)
  1. VELETRI [Suspect]
     Active Substance: EPOPROSTENOL
     Indication: PULMONARY HYPERTENSION
     Dosage: 8 NG/KG/MIN
     Route: 042
  2. REMODULIN [Suspect]
     Active Substance: TREPROSTINIL
     Indication: PRODUCT USED FOR UNKNOWN INDICATION
     Route: 042

REACTIONS (9)
  - Feeling abnormal [Unknown]
  - Weight decreased [Unknown]
  - Catheter site pruritus [Unknown]
  - Fatigue [Unknown]
  - Catheter site erythema [Unknown]
  - Ephelides [Unknown]
  - Catheter site inflammation [Unknown]
  - Vertigo [Unknown]
  - Diarrhoea [Recovering/Resolving]
